FAERS Safety Report 19604017 (Version 2)
Quarter: 2021Q3

REPORT INFORMATION
  Report Type: Other
  Country: IT (occurrence: IT)
  Receive Date: 20210724
  Receipt Date: 20210818
  Transmission Date: 20211014
  Serious: Yes (Other)
  Sender: FDA-Public Use
  Company Number: IT-B.BRAUN MEDICAL INC.-2114237

PATIENT
  Age: 13 Year
  Sex: Male

DRUGS (17)
  1. LIDOCAINE HYDROCHLORIDE AND DEXTROSE [Suspect]
     Active Substance: DEXTROSE\LIDOCAINE HYDROCHLORIDE
     Indication: PARTIAL SEIZURES
  2. VALPROATE [Suspect]
     Active Substance: VALPROIC ACID
  3. THIOPENTAL SODIUM. [Concomitant]
     Active Substance: THIOPENTAL SODIUM
     Route: 042
  4. PHENYTOIN. [Suspect]
     Active Substance: PHENYTOIN
  5. BENZODIAZEPINES ? UNSPECIFIED [Suspect]
     Active Substance: BENZODIAZEPINE
  6. MIDAZOLAM. [Suspect]
     Active Substance: MIDAZOLAM
  7. CARBAMAZEPINE. [Suspect]
     Active Substance: CARBAMAZEPINE
  8. SIROLIMUS. [Concomitant]
     Active Substance: SIROLIMUS
  9. BORTEZOMIB. [Concomitant]
     Active Substance: BORTEZOMIB
  10. LEVETIRACETAM. [Suspect]
     Active Substance: LEVETIRACETAM
  11. CLOBAZAM. [Suspect]
     Active Substance: CLOBAZAM
  12. PHENOBARBITAL. [Suspect]
     Active Substance: PHENOBARBITAL
  13. PERAMPANEL [Suspect]
     Active Substance: PERAMPANEL
  14. RITUXIMAB. [Concomitant]
     Active Substance: RITUXIMAB
  15. ANAKINRA [Concomitant]
     Active Substance: ANAKINRA
  16. LACOSAMIDE. [Suspect]
     Active Substance: LACOSAMIDE
  17. TOPIRAMATE. [Suspect]
     Active Substance: TOPIRAMATE

REACTIONS (2)
  - Drug ineffective [None]
  - Off label use [None]
